FAERS Safety Report 9570066 (Version 2)
Quarter: 2017Q2

REPORT INFORMATION
  Report Type: Report from Study
  Country: US (occurrence: US)
  Receive Date: 20130930
  Receipt Date: 20170518
  Transmission Date: 20170830
  Serious: Yes (Other)
  Sender: FDA-Public Use
  Company Number: US-AMGEN-USASP2013065102

PATIENT
  Age: 57 Year
  Sex: Female

DRUGS (4)
  1. HUMIRA [Concomitant]
     Active Substance: ADALIMUMAB
     Dosage: UNK
  2. METHOTREXATE. [Concomitant]
     Active Substance: METHOTREXATE
     Dosage: 15 MG, UNK
     Route: 048
     Dates: start: 201202
  3. ENBREL [Suspect]
     Active Substance: ETANERCEPT
     Indication: PSORIATIC ARTHROPATHY
     Dosage: 25 MG, 2 TIMES/WK
     Route: 065
  4. ENBREL [Suspect]
     Active Substance: ETANERCEPT
     Indication: RHEUMATOID ARTHRITIS
     Dosage: 25 MG, 2 TIMES/WK
     Route: 065
     Dates: start: 20020101

REACTIONS (4)
  - Psoriasis [Recovered/Resolved]
  - Labelled drug-disease interaction medication error [Unknown]
  - Pustular psoriasis [Recovered/Resolved]
  - Infection susceptibility increased [Unknown]

NARRATIVE: CASE EVENT DATE: 201111
